FAERS Safety Report 19960177 (Version 1)
Quarter: 2021Q4

REPORT INFORMATION
  Report Type: Spontaneous
  Country: US (occurrence: US)
  Receive Date: 20211015
  Receipt Date: 20211015
  Transmission Date: 20220304
  Serious: No
  Sender: FDA-Public Use
  Company Number: US-IPSEN BIOPHARMACEUTICALS, INC.-2021-24719

PATIENT
  Age: 66 Year
  Sex: Female

DRUGS (4)
  1. SOMATULINE DEPOT [Suspect]
     Active Substance: LANREOTIDE ACETATE
     Indication: Product used for unknown indication
     Dosage: DOSE NOT REPORTED
     Route: 065
  2. SOMATULINE DEPOT [Suspect]
     Active Substance: LANREOTIDE ACETATE
     Dosage: DOSE NOT REPORTED
     Route: 065
  3. SOMATULINE DEPOT [Suspect]
     Active Substance: LANREOTIDE ACETATE
     Dosage: DOSE NOT REPORTED
     Route: 065
  4. SOMATULINE DEPOT [Suspect]
     Active Substance: LANREOTIDE ACETATE
     Dosage: DOSE NOT REPORTED
     Route: 065

REACTIONS (5)
  - Depression [Unknown]
  - Anger [Unknown]
  - Abdominal discomfort [Unknown]
  - Blood test abnormal [Recovered/Resolved]
  - Off label use [Unknown]
